FAERS Safety Report 11327467 (Version 8)
Quarter: 2019Q4

REPORT INFORMATION
  Report Type: Spontaneous
  Country: US (occurrence: US)
  Receive Date: 20150731
  Receipt Date: 20191008
  Transmission Date: 20200122
  Serious: Yes (Hospitalization, Other)
  Sender: FDA-Public Use
  Company Number: US-PFIZER INC-2015255092

PATIENT
  Age: 49 Year
  Sex: Female
  Weight: 104.31 kg

DRUGS (16)
  1. LYRICA [Suspect]
     Active Substance: PREGABALIN
     Indication: MAJOR DEPRESSION
  2. VENTOLIN [Concomitant]
     Active Substance: ALBUTEROL SULFATE
     Dosage: UNK
  3. BENZOYL PEROXIDE. [Concomitant]
     Active Substance: BENZOYL PEROXIDE
     Dosage: UNK
  4. LYRICA [Suspect]
     Active Substance: PREGABALIN
     Indication: FIBROMYALGIA
     Dosage: 150 MG, 4X/DAY
     Route: 048
     Dates: start: 201308, end: 201312
  5. ACETAMINOPHEN. [Concomitant]
     Active Substance: ACETAMINOPHEN
     Dosage: UNK
     Dates: start: 2014
  6. LYRICA [Suspect]
     Active Substance: PREGABALIN
     Indication: NEURALGIA
     Dosage: 150 MG, 4X/DAY
     Route: 048
     Dates: start: 201401, end: 201412
  7. LYRICA [Suspect]
     Active Substance: PREGABALIN
     Indication: PAIN
     Dosage: 150 MG, 4X/DAY
     Route: 048
     Dates: start: 201501
  8. LEVOTHYROXINE. [Concomitant]
     Active Substance: LEVOTHYROXINE
     Dosage: UNK
     Dates: start: 2012
  9. OMEPRAZOLE. [Concomitant]
     Active Substance: OMEPRAZOLE
     Dosage: UNK
     Dates: start: 2015
  10. CLINDAMYCIN. [Concomitant]
     Active Substance: CLINDAMYCIN
     Dosage: UNK
  11. SKELAXIN [Suspect]
     Active Substance: METAXALONE
     Dosage: 800 MG, 3X/DAY (EVERY 8 HOURS AS NEEDED)
     Route: 048
     Dates: start: 201501
  12. APAP [Concomitant]
     Active Substance: ACETAMINOPHEN
     Dosage: UNK
  13. SKELAXIN [Suspect]
     Active Substance: METAXALONE
     Indication: INFLAMMATORY PAIN
     Dosage: 800 MG, 3X/DAY (EVERY 8 HOURS AS NEEDED)
     Route: 048
     Dates: start: 201308, end: 201312
  14. SKELAXIN [Suspect]
     Active Substance: METAXALONE
     Indication: MUSCLE SPASMS
     Dosage: 2400 MG, DAILY (800 MG, 1 MORNING, 2:00 PM AND 2 AT NIGHT BEFORE BED)
     Dates: start: 201301
  15. SKELAXIN [Suspect]
     Active Substance: METAXALONE
     Dosage: 800 MG, 3X/DAY (EVERY 8 HOURS AS NEEDED)
     Route: 048
     Dates: start: 201401, end: 201412
  16. VITAMIN D [Concomitant]
     Active Substance: VITAMIN D NOS
     Dosage: UNK
     Dates: start: 2012

REACTIONS (19)
  - Drug ineffective [Unknown]
  - Malaise [Not Recovered/Not Resolved]
  - Vomiting [Recovered/Resolved]
  - Nervousness [Unknown]
  - Migraine [Unknown]
  - Decreased appetite [Unknown]
  - Constipation [Unknown]
  - Swelling face [Unknown]
  - Sensation of blood flow [Unknown]
  - Crying [Unknown]
  - Pain [Unknown]
  - Headache [Not Recovered/Not Resolved]
  - Neuropathy peripheral [Unknown]
  - Abdominal pain upper [Unknown]
  - Eye swelling [Unknown]
  - Eructation [Not Recovered/Not Resolved]
  - Nausea [Unknown]
  - Asthenia [Unknown]
  - Gastric disorder [Unknown]
